FAERS Safety Report 16156454 (Version 3)
Quarter: 2019Q3

REPORT INFORMATION
  Report Type: Report from Study
  Country: US (occurrence: US)
  Receive Date: 20190404
  Receipt Date: 20190715
  Transmission Date: 20191004
  Serious: Yes (Other)
  Sender: FDA-Public Use
  Company Number: US-ROCHE-2292003

PATIENT
  Age: 66 Year
  Sex: Female

DRUGS (4)
  1. LINZESS [Concomitant]
     Active Substance: LINACLOTIDE
  2. OCREVUS [Suspect]
     Active Substance: OCRELIZUMAB
     Indication: RELAPSING-REMITTING MULTIPLE SCLEROSIS
     Dosage: ONGOING:UNKNOWN
     Route: 065
     Dates: start: 20180510
  3. AMPYRA [Suspect]
     Active Substance: DALFAMPRIDINE
     Indication: PRODUCT USED FOR UNKNOWN INDICATION
     Route: 065
  4. MIRALAX [Concomitant]
     Active Substance: POLYETHYLENE GLYCOL 3350

REACTIONS (7)
  - Pneumonia [Recovered/Resolved]
  - Bladder disorder [Unknown]
  - Influenza [Recovered/Resolved]
  - Herpes zoster [Recovered/Resolved]
  - Immunodeficiency [Unknown]
  - Urinary tract infection [Recovered/Resolved]
  - Constipation [Unknown]

NARRATIVE: CASE EVENT DATE: 201811
